FAERS Safety Report 18740975 (Version 1)
Quarter: 2021Q1

REPORT INFORMATION
  Report Type: Spontaneous
  Country: US (occurrence: US)
  Receive Date: 20210114
  Receipt Date: 20210114
  Transmission Date: 20210419
  Serious: No
  Sender: FDA-Public Use
  Company Number: US-PFIZER INC-2020253009

PATIENT
  Age: 6 Year
  Sex: Female

DRUGS (3)
  1. VASELINE [PARAFFIN SOFT] [Concomitant]
     Dosage: UNK (APPLIED IMMEDIATELY AFTER THE BATH)
  2. DESONIDE. [Concomitant]
     Active Substance: DESONIDE
     Indication: DERMATITIS ATOPIC
     Dosage: UNK, 2X/DAY (DESONIDE 0.05% AND IS APPLIED TWICE A DAY TO THE AFFECTED AREAS)
  3. EUCRISA [Suspect]
     Active Substance: CRISABOROLE
     Indication: DERMATITIS ATOPIC
     Dosage: UNK

REACTIONS (1)
  - Drug ineffective [Unknown]
